FAERS Safety Report 11700639 (Version 1)
Quarter: 2015Q4

REPORT INFORMATION
  Report Type: Spontaneous
  Country: US (occurrence: None)
  Receive Date: 20151104
  Receipt Date: 20151104
  Transmission Date: 20160304
  Serious: Yes (Disabling)
  Sender: FDA-Public Use
  Company Number: None

PATIENT
  Age: 54 Year
  Sex: Female
  Weight: 68.04 kg

DRUGS (6)
  1. NUVIGIL [Suspect]
     Active Substance: ARMODAFINIL
     Indication: SOMNAMBULISM
     Dosage: 7 PILLS
     Route: 048
     Dates: start: 20150810, end: 20150815
  2. CPAP MACHINE [Concomitant]
  3. TESTOSTERONE. [Concomitant]
     Active Substance: TESTOSTERONE
  4. NUVIGIL [Suspect]
     Active Substance: ARMODAFINIL
     Indication: SOMNOLENCE
     Dosage: 7 PILLS
     Route: 048
     Dates: start: 20150810, end: 20150815
  5. ESTRIDOL [Concomitant]
  6. PROGESTERONE. [Concomitant]
     Active Substance: PROGESTERONE

REACTIONS (4)
  - Pulse abnormal [None]
  - Respiratory rate increased [None]
  - Heart rate irregular [None]
  - Cardiac flutter [None]

NARRATIVE: CASE EVENT DATE: 20150810
